FAERS Safety Report 9108892 (Version 2)
Quarter: 2013Q1

REPORT INFORMATION
  Report Type: Report from Study
  Country: NL (occurrence: NL)
  Receive Date: 20130222
  Receipt Date: 20130321
  Transmission Date: 20140127
  Serious: Yes (Death, Hospitalization, Other)
  Sender: FDA-Public Use
  Company Number: NL-AMGEN-NLDNI2012078261

PATIENT
  Sex: Male
  Weight: 97 kg

DRUGS (2)
  1. PANITUMUMAB [Suspect]
     Indication: COLORECTAL CANCER
     Dosage: 582 MG, Q2WK
     Route: 042
     Dates: start: 20100205, end: 20100315
  2. OPIOIDS [Concomitant]
     Indication: PAIN MANAGEMENT

REACTIONS (3)
  - Constipation [Fatal]
  - Ileus [Fatal]
  - Staphylococcal sepsis [Fatal]
